FAERS Safety Report 25235529 (Version 4)
Quarter: 2025Q4

REPORT INFORMATION
  Report Type: Report from Study
  Country: US (occurrence: US)
  Receive Date: 20250424
  Receipt Date: 20251211
  Transmission Date: 20260117
  Serious: Yes (Other)
  Sender: ABBVIE
  Company Number: US-ABBVIE-6241294

PATIENT
  Age: 60 Year
  Sex: Female

DRUGS (2)
  1. SKYRIZI [Suspect]
     Active Substance: RISANKIZUMAB-RZAA
     Indication: Crohn^s disease
     Dosage: DRUG STOP DATE: 2025
     Route: 042
     Dates: start: 20250227
  2. SKYRIZI [Suspect]
     Active Substance: RISANKIZUMAB-RZAA
     Indication: Crohn^s disease
     Dosage: DRUG STOP DATE: 2025
     Route: 042
     Dates: start: 202504, end: 202508

REACTIONS (2)
  - Breast cancer female [Unknown]
  - Illness [Unknown]

NARRATIVE: CASE EVENT DATE: 20250101
